FAERS Safety Report 8735900 (Version 3)
Quarter: 2012Q4

REPORT INFORMATION
  Report Type: Spontaneous
  Country: None (occurrence: None)
  Receive Date: 20120803
  Receipt Date: 20121024
  Transmission Date: 20130627
  Serious: Yes (Death, Congenital Anomaly, Other)
  Sender: FDA-Public Use
  Company Number: AUR-APL-2012-03216

PATIENT
  Age: 1 Hour
  Sex: Male
  Weight: 2.3 kg

DRUGS (2)
  1. LAMOTRIGINE [Suspect]
     Indication: EPILEPSY
     Dosage: 300 MG (300 MG,1 IN 1 D),TRANSPLACENTAL
     Route: 064
     Dates: start: 201008
  2. FOLIC ACID [Concomitant]

REACTIONS (7)
  - Maternal drugs affecting foetus [None]
  - Renal aplasia [None]
  - Anal atresia [None]
  - Polydactyly [None]
  - Exposure via father [None]
  - Pulmonary hypoplasia [None]
  - Premature baby [None]
